FAERS Safety Report 5076662-5 (Version None)
Quarter: 2006Q3

REPORT INFORMATION
  Report Type: 
  Country: None (occurrence: None)
  Receive Date: 20060810
  Receipt Date: 20060803
  Transmission Date: 20061208
  Serious: Yes (Hospitalization)
  Sender: FDA-Public Use
  Company Number: SE-AVENTIS-200614243EU

PATIENT
  Age: 85 Year
  Sex: Female

DRUGS (4)
  1. LASIX [Suspect]
     Indication: OEDEMA
     Dosage: DOSE: DOSE NOT GIVEN
     Route: 048
     Dates: start: 20060501, end: 20060506
  2. DIGOXIN [Suspect]
     Indication: ATRIAL FIBRILLATION
     Dosage: DOSE: DOSE NOT GIVEN
     Route: 048
     Dates: end: 20060506
  3. OMEPRAZOLE [Concomitant]
     Route: 048
  4. TROMBYL [Concomitant]
     Route: 048

REACTIONS (3)
  - BRADYCARDIA [None]
  - HYPOKALAEMIA [None]
  - SYNCOPE [None]
